FAERS Safety Report 5186730-5 (Version None)
Quarter: 2006Q4

REPORT INFORMATION
  Report Type: 
  Country: None (occurrence: None)
  Receive Date: 20061208
  Receipt Date: 20061201
  Transmission Date: 20070319
  Serious: Yes (Other)
  Sender: FDA-Public Use
  Company Number: HQWYE126104DEC06

PATIENT
  Age: 4 Year
  Sex: Male
  Weight: 20 kg

DRUGS (1)
  1. REFACTO [Suspect]
     Indication: FACTOR VIII DEFICIENCY
     Dosage: ON DEMAND THERAPY (20-40 IU/KG) WITH { 10 EXPOSURES, INTRAVENOUS
     Route: 042

REACTIONS (4)
  - FACTOR VIII INHIBITION [None]
  - HAEMORRHAGE [None]
  - SOFT TISSUE HAEMORRHAGE [None]
  - THERAPY NON-RESPONDER [None]
